FAERS Safety Report 12105415 (Version 1)
Quarter: 2016Q1

REPORT INFORMATION
  Report Type: Report from Study
  Country: BR (occurrence: BR)
  Receive Date: 20160223
  Receipt Date: 20160223
  Transmission Date: 20160526
  Serious: Yes (Other)
  Sender: FDA-Public Use
  Company Number: PHHY2014BR054506

PATIENT
  Sex: Male
  Weight: 91 kg

DRUGS (1)
  1. GILENYA [Suspect]
     Active Substance: FINGOLIMOD HYDROCHLORIDE
     Indication: MULTIPLE SCLEROSIS
     Dosage: 0.5 MG, QD
     Route: 048
     Dates: start: 201507

REACTIONS (11)
  - Multiple sclerosis relapse [Recovering/Resolving]
  - Muscle spasms [Recovering/Resolving]
  - Alopecia [Not Recovered/Not Resolved]
  - Ulcer [Recovering/Resolving]
  - Lymphadenitis [Recovering/Resolving]
  - Herpes virus infection [Recovering/Resolving]
  - Groin pain [Recovering/Resolving]
  - Dyspnoea [Recovering/Resolving]
  - Genital herpes [Recovered/Resolved]
  - Muscle twitching [Recovering/Resolving]
  - Fatigue [Recovering/Resolving]

NARRATIVE: CASE EVENT DATE: 2015
